FAERS Safety Report 20854482 (Version 3)
Quarter: 2022Q2

REPORT INFORMATION
  Report Type: Spontaneous
  Country: US (occurrence: US)
  Receive Date: 20220520
  Receipt Date: 20220620
  Transmission Date: 20220721
  Serious: Yes (Other)
  Sender: FDA-Public Use
  Company Number: US-JNJFOC-20220523538

PATIENT
  Age: 48 Year
  Sex: Male
  Weight: 114.41 kg

DRUGS (5)
  1. TREMFYA [Suspect]
     Active Substance: GUSELKUMAB
     Indication: Psoriatic arthropathy
     Route: 058
     Dates: start: 20220403
  2. TREMFYA [Suspect]
     Active Substance: GUSELKUMAB
     Route: 058
     Dates: start: 20220501
  3. CELEBREX [Concomitant]
     Active Substance: CELECOXIB
     Indication: Psoriatic arthropathy
     Route: 065
  4. METHOTREXATE [Concomitant]
     Active Substance: METHOTREXATE
     Indication: Psoriatic arthropathy
     Route: 065
  5. LISINOPRIL [Concomitant]
     Active Substance: LISINOPRIL
     Indication: Hypertension
     Route: 065

REACTIONS (4)
  - Psoriatic arthropathy [Unknown]
  - Product storage error [Unknown]
  - Therapeutic response decreased [Unknown]
  - Product label issue [Unknown]
